FAERS Safety Report 4509014-4 (Version None)
Quarter: 2004Q4

REPORT INFORMATION
  Report Type: 
  Country: None (occurrence: None)
  Receive Date: 20041122
  Receipt Date: 20041122
  Transmission Date: 20050328
  Serious: Yes (Hospitalization)
  Sender: FDA-Public Use
  Company Number: None

PATIENT
  Age: 72 Year
  Sex: Male

DRUGS (1)
  1. AMPICILLIN [Suspect]
     Indication: CAROTID ENDARTERECTOMY
     Dates: start: 20040610, end: 20040610

REACTIONS (5)
  - BLOOD BILIRUBIN INCREASED [None]
  - CHROMATURIA [None]
  - LIVER FUNCTION TEST ABNORMAL [None]
  - POST PROCEDURAL COMPLICATION [None]
  - TRANSAMINASES INCREASED [None]
